FAERS Safety Report 5586621-1 (Version None)
Quarter: 2008Q1

REPORT INFORMATION
  Report Type: 
  Country: None (occurrence: None)
  Receive Date: 20080110
  Receipt Date: 20070925
  Transmission Date: 20080703
  Serious: No
  Sender: FDA-Public Use
  Company Number: US-BAYER-US-2007-036128

PATIENT
  Age: 36 Year
  Sex: Female
  Weight: 46 kg

DRUGS (1)
  1. YAZ [Suspect]
     Indication: ORAL CONTRACEPTION
     Route: 048
     Dates: start: 20060101

REACTIONS (2)
  - HYPOMENORRHOEA [None]
  - MENSTRUATION DELAYED [None]
